FAERS Safety Report 5984176-0 (Version None)
Quarter: 2008Q4

REPORT INFORMATION
  Report Type: 
  Country: None (occurrence: None)
  Receive Date: 20081205
  Receipt Date: 20081205
  Transmission Date: 20090506
  Serious: No
  Sender: FDA-Public Use
  Company Number: None

PATIENT
  Age: 60 Year
  Sex: Male
  Weight: 96.82 kg

DRUGS (1)
  1. VANCOMYCIN [Suspect]
     Dosage: 1.5 GM ONCE IV
     Route: 042
     Dates: start: 20080616, end: 20080616

REACTIONS (2)
  - HYPOTENSION [None]
  - RASH [None]
